FAERS Safety Report 23514290 (Version 2)
Quarter: 2024Q1

REPORT INFORMATION
  Report Type: Spontaneous
  Country: US (occurrence: US)
  Receive Date: 20240212
  Receipt Date: 20240305
  Transmission Date: 20240410
  Serious: No
  Sender: FDA-Public Use
  Company Number: US-PFIZER INC-202400036946

PATIENT
  Age: 79 Year
  Sex: Female

DRUGS (7)
  1. PAXLOVID [Suspect]
     Active Substance: NIRMATRELVIR\RITONAVIR
     Indication: COVID-19 treatment
     Dosage: UNK
     Dates: start: 20240127, end: 20240201
  2. PRAVASTATIN GLENMARK [Concomitant]
     Dosage: UNK
     Dates: start: 201708, end: 20240128
  3. CLOPIDOGREL DR. REDDYS [Concomitant]
     Dosage: UNK
     Dates: start: 200206, end: 20240128
  4. EZETIMIBE GLENMARK [Concomitant]
     Dosage: UNK
     Dates: start: 202112
  5. D3 SPECTRUM [Concomitant]
     Dosage: UNK
     Dates: start: 201009
  6. CALCIUM SPECTRUM [Concomitant]
     Dosage: UNK
     Dates: start: 200405
  7. FISH OIL\OMEGA-3 FATTY ACIDS [Concomitant]
     Active Substance: FISH OIL\OMEGA-3 FATTY ACIDS
     Dosage: UNK
     Dates: start: 200106

REACTIONS (2)
  - COVID-19 [Recovering/Resolving]
  - Disease recurrence [Recovering/Resolving]

NARRATIVE: CASE EVENT DATE: 20240205
